FAERS Safety Report 4456949-7 (Version None)
Quarter: 2004Q3

REPORT INFORMATION
  Report Type: 
  Country: None (occurrence: None)
  Receive Date: 20040921
  Receipt Date: 20040908
  Transmission Date: 20050211
  Serious: Yes (Disabling)
  Sender: FDA-Public Use
  Company Number: 04H-163-0273224-00

PATIENT
  Age: 58 Year
  Sex: Female

DRUGS (3)
  1. HEPARIN SODIUM [Suspect]
     Dosage: HOSPITAL DAY 1
  2. HEPARIN SODIUM [Suspect]
     Indication: THROMBOSIS PROPHYLAXIS
     Dosage: DAY 2 OF HOSPITALIZATION
  3. ACETYLSALICYLIC ACID [Concomitant]

REACTIONS (16)
  - ARTERIAL OCCLUSIVE DISEASE [None]
  - GANGRENE [None]
  - HAND AMPUTATION [None]
  - HEPARIN-INDUCED THROMBOCYTOPENIA [None]
  - INFUSION SITE REACTION [None]
  - ISCHAEMIA [None]
  - OEDEMA PERIPHERAL [None]
  - PERIPHERAL COLDNESS [None]
  - PLEURAL EFFUSION [None]
  - PNEUMONIA [None]
  - POST PROCEDURAL COMPLICATION [None]
  - PULSE PRESSURE DECREASED [None]
  - RENAL FAILURE [None]
  - SKIN DISCOLOURATION [None]
  - THROMBOSIS [None]
  - TOE AMPUTATION [None]
